FAERS Safety Report 7744181-0 (Version None)
Quarter: 2011Q3

REPORT INFORMATION
  Report Type: 
  Country: None (occurrence: None)
  Receive Date: 20110819
  Receipt Date: 20110624
  Transmission Date: 20111222
  Serious: No
  Sender: FDA-Public Use
  Company Number: 036038

PATIENT
  Age: 10 Year
  Sex: Female

DRUGS (3)
  1. LYRICA [Concomitant]
  2. PHENYTOIN [Concomitant]
  3. LACOSAMIDE [Suspect]
     Dosage: (150 MG BID)

REACTIONS (1)
  - ELECTROCARDIOGRAM ABNORMAL [None]
